FAERS Safety Report 23844587 (Version 1)
Quarter: 2024Q2

REPORT INFORMATION
  Report Type: Spontaneous
  Country: GR (occurrence: GR)
  Receive Date: 20240511
  Receipt Date: 20240511
  Transmission Date: 20240716
  Serious: Yes (Hospitalization, Other)
  Sender: FDA-Public Use
  Company Number: GR-ASTELLAS-2024US012108

PATIENT
  Age: 63 Year
  Sex: Male

DRUGS (2)
  1. KEYTRUDA [Suspect]
     Active Substance: PEMBROLIZUMAB
     Indication: Transitional cell carcinoma
     Dosage: 200 MG, EVERY 3 WEEKS
     Route: 065
  2. PADCEV [Suspect]
     Active Substance: ENFORTUMAB VEDOTIN-EJFV
     Indication: Transitional cell carcinoma
     Dosage: UNK UNK, CYCLIC (2 CYCLES OF TREATMENT)
     Route: 065

REACTIONS (4)
  - Dermatitis psoriasiform [Unknown]
  - Dermatitis exfoliative [Unknown]
  - Product use issue [Unknown]
  - Off label use [Unknown]
